FAERS Safety Report 8344318-9 (Version None)
Quarter: 2012Q2

REPORT INFORMATION
  Report Type: 
  Country: None (occurrence: None)
  Receive Date: 20120508
  Receipt Date: 20120503
  Transmission Date: 20120825
  Serious: Yes (Other)
  Sender: FDA-Public Use
  Company Number: DE-PFIZER INC-2012102131

PATIENT
  Age: 68 Year
  Sex: Female
  Weight: 73 kg

DRUGS (2)
  1. SUTENT [Suspect]
     Indication: METASTATIC RENAL CELL CARCINOMA
     Dosage: 50 MG, UNK (FIRST CYCLE 4/2 REGIMEN)
     Route: 048
     Dates: start: 20120216, end: 20120316
  2. SUTENT [Suspect]
     Dosage: 50 MG, UNK (CYCLE 2)
     Route: 048
     Dates: start: 20120329, end: 20120426

REACTIONS (2)
  - PLATELET COUNT DECREASED [None]
  - HAEMOGLOBIN DECREASED [None]
